FAERS Safety Report 17819223 (Version 1)
Quarter: 2020Q2

REPORT INFORMATION
  Report Type: Spontaneous
  Country: TH (occurrence: TH)
  Receive Date: 20200523
  Receipt Date: 20200523
  Transmission Date: 20200714
  Serious: Yes (Life-Threatening, Hospitalization, Other)
  Sender: FDA-Public Use
  Company Number: TH-ACCORD-182853

PATIENT
  Age: 27 Year
  Sex: Female

DRUGS (2)
  1. AMITRIPTYLINE [Suspect]
     Active Substance: AMITRIPTYLINE
     Dosage: STRENGTH: 25 MG
     Route: 048
  2. AMITRIPTYLINE [Suspect]
     Active Substance: AMITRIPTYLINE
     Dosage: INGESTED A HANDFUL AMOUNT OF 25-MG TABLETS
     Route: 048

REACTIONS (11)
  - Intentional overdose [Unknown]
  - Mydriasis [Recovered/Resolved]
  - Toxicity to various agents [Unknown]
  - Generalised tonic-clonic seizure [Recovered/Resolved]
  - Coma [Recovered/Resolved]
  - Anhidrosis [Recovered/Resolved]
  - Sinus tachycardia [Recovered/Resolved]
  - Photophobia [Recovered/Resolved]
  - Electrocardiogram QRS complex prolonged [Recovered/Resolved]
  - Gastrointestinal sounds abnormal [Recovered/Resolved]
  - Ophthalmoplegia [Recovered/Resolved]
